FAERS Safety Report 6389179-2 (Version None)
Quarter: 2009Q4

REPORT INFORMATION
  Report Type: 
  Country: None (occurrence: None)
  Receive Date: 20091006
  Receipt Date: 20070523
  Transmission Date: 20100525
  Serious: Yes (Hospitalization, Other)
  Sender: FDA-Public Use
  Company Number: US-ASTRAZENECA-2006UW23316

PATIENT
  Age: 527 Month
  Sex: Male
  Weight: 102.1 kg

DRUGS (11)
  1. SEROQUEL [Suspect]
     Indication: INSOMNIA
     Route: 048
     Dates: start: 20010801, end: 20030601
  2. SEROQUEL [Suspect]
     Indication: DEPRESSION
     Route: 048
     Dates: start: 20010801, end: 20030601
  3. SEROQUEL [Suspect]
     Indication: BIPOLAR DISORDER
     Route: 048
     Dates: start: 20010801, end: 20030601
  4. SEROQUEL [Suspect]
     Dosage: 100 - 250 MG
     Route: 048
     Dates: start: 20010917
  5. SEROQUEL [Suspect]
     Dosage: 100 - 250 MG
     Route: 048
     Dates: start: 20010917
  6. SEROQUEL [Suspect]
     Dosage: 100 - 250 MG
     Route: 048
     Dates: start: 20010917
  7. HALDOL [Concomitant]
     Dosage: 10 - 50 MG
     Dates: start: 19920301
  8. NAVANE [Concomitant]
     Dates: start: 19920301
  9. WELLBUTRIN [Concomitant]
     Dosage: 150 - 300
     Route: 048
     Dates: start: 19990215
  10. DIVALPROEX SODIUM [Concomitant]
     Route: 048
     Dates: start: 20011022
  11. ISONIAZID [Concomitant]
     Dates: start: 20011022

REACTIONS (10)
  - AGGRESSION [None]
  - ALCOHOLISM [None]
  - BLOOD CHOLESTEROL INCREASED [None]
  - DIABETES MELLITUS [None]
  - HOMICIDAL IDEATION [None]
  - HYPERGLYCAEMIA [None]
  - NEUROLEPTIC MALIGNANT SYNDROME [None]
  - NIGHTMARE [None]
  - SOMNAMBULISM [None]
  - TYPE 2 DIABETES MELLITUS [None]
